FAERS Safety Report 19169075 (Version 1)
Quarter: 2021Q2

REPORT INFORMATION
  Report Type: Spontaneous
  Country: US (occurrence: US)
  Receive Date: 20210422
  Receipt Date: 20210422
  Transmission Date: 20210717
  Serious: Yes (Other)
  Sender: FDA-Public Use
  Company Number: US-TAKEDA-2021TUS025295

PATIENT
  Age: 46 Year
  Sex: Male

DRUGS (1)
  1. PONATINIB [Suspect]
     Active Substance: PONATINIB
     Indication: METASTATIC NEOPLASM
     Dosage: UNK
     Route: 065

REACTIONS (2)
  - Clonal evolution [Unknown]
  - Off label use [Unknown]
